FAERS Safety Report 25434954 (Version 2)
Quarter: 2025Q3

REPORT INFORMATION
  Report Type: Spontaneous
  Country: CA (occurrence: CA)
  Receive Date: 20250613
  Receipt Date: 20250714
  Transmission Date: 20251021
  Serious: Yes (Other)
  Sender: PFIZER
  Company Number: CA-PFIZER INC-202500120259

PATIENT
  Age: 41 Year
  Sex: Female
  Weight: 123 kg

DRUGS (3)
  1. IXIFI [Suspect]
     Active Substance: INFLIXIMAB-QBTX
     Indication: Ankylosing spondylitis
     Route: 042
     Dates: start: 20250528
  2. IXIFI [Suspect]
     Active Substance: INFLIXIMAB-QBTX
     Route: 042
     Dates: start: 20250611
  3. IXIFI [Suspect]
     Active Substance: INFLIXIMAB-QBTX
     Route: 042
     Dates: start: 20250709

REACTIONS (2)
  - Uveitis [Recovered/Resolved]
  - Therapeutic response shortened [Unknown]

NARRATIVE: CASE EVENT DATE: 20250101
